FAERS Safety Report 12231691 (Version 1)
Quarter: 2016Q2

REPORT INFORMATION
  Report Type: Spontaneous
  Country: CN (occurrence: CN)
  Receive Date: 20160401
  Receipt Date: 20160401
  Transmission Date: 20160815
  Serious: Yes (Hospitalization, Other)
  Sender: FDA-Public Use
  Company Number: CN-GILEAD-2016-0205826

PATIENT
  Age: 56 Year
  Sex: Male

DRUGS (2)
  1. LAMIVUDINE. [Concomitant]
     Active Substance: LAMIVUDINE
     Indication: HEPATIC CIRRHOSIS
     Dosage: UNK
  2. HEPSERA [Suspect]
     Active Substance: ADEFOVIR DIPIVOXIL
     Indication: HEPATITIS B
     Dosage: 10 MG, QD
     Route: 065
     Dates: start: 2006

REACTIONS (6)
  - Hypophosphataemia [Recovering/Resolving]
  - Fanconi syndrome acquired [Recovering/Resolving]
  - Arthralgia [Recovering/Resolving]
  - Osteomalacia [Recovering/Resolving]
  - Osteoporosis [Recovering/Resolving]
  - Renal impairment [Recovering/Resolving]
